FAERS Safety Report 11165655 (Version 1)
Quarter: 2015Q2

REPORT INFORMATION
  Report Type: Spontaneous
  Country: US (occurrence: US)
  Receive Date: 20150604
  Receipt Date: 20150604
  Transmission Date: 20150821
  Serious: Yes (Other)
  Sender: FDA-Public Use
  Company Number: US-ASTELLAS-2015US018894

PATIENT
  Age: 69 Year
  Sex: Female

DRUGS (1)
  1. TARCEVA [Suspect]
     Active Substance: ERLOTINIB HYDROCHLORIDE
     Indication: LUNG NEOPLASM MALIGNANT
     Route: 048
     Dates: start: 20150520, end: 20150523

REACTIONS (4)
  - Dysstasia [Unknown]
  - Asthenia [Unknown]
  - Vision blurred [Unknown]
  - Hypophagia [Unknown]

NARRATIVE: CASE EVENT DATE: 20150523
